FAERS Safety Report 4896039-2 (Version None)
Quarter: 2005Q4

REPORT INFORMATION
  Report Type: 
  Country: None (occurrence: None)
  Receive Date: 20051220
  Receipt Date: 20050809
  Transmission Date: 20060501
  Serious: Yes (Hospitalization, Other)
  Sender: FDA-Public Use
  Company Number: KDL145867

PATIENT
  Age: 57 Year
  Sex: Female

DRUGS (9)
  1. ENBREL [Suspect]
     Indication: PSORIASIS
     Dosage: 50 MG, 2 IN 1 WEEKS
     Dates: start: 20050708, end: 20050806
  2. ATENOLOL [Concomitant]
  3. CELEXA [Concomitant]
  4. VALSARTAN [Concomitant]
  5. PIOGLITAZONE HCL [Concomitant]
  6. GLIBENCLAMIDE [Concomitant]
  7. ACETYLSALICYLIC ACID SRT [Concomitant]
  8. SIMVASTATIN [Concomitant]
  9. CLONAZEPAM [Concomitant]

REACTIONS (2)
  - ANGINA PECTORIS [None]
  - DEMYELINATION [None]
